FAERS Safety Report 6265890-9 (Version None)
Quarter: 2009Q3

REPORT INFORMATION
  Report Type: 
  Country: None (occurrence: None)
  Receive Date: 20090713
  Receipt Date: 20090707
  Transmission Date: 20100115
  Serious: Yes (Other)
  Sender: FDA-Public Use
  Company Number: GB-JNJFOC-20090702995

PATIENT
  Age: 42 Year
  Sex: Male

DRUGS (5)
  1. TOPIRAMATE [Suspect]
     Route: 048
  2. TOPIRAMATE [Suspect]
     Route: 048
  3. TOPIRAMATE [Suspect]
     Route: 048
  4. TOPIRAMATE [Suspect]
     Route: 048
  5. TOPIRAMATE [Suspect]
     Indication: CHRONIC PAROXYSMAL HEMICRANIA
     Route: 048

REACTIONS (3)
  - COGNITIVE DISORDER [None]
  - DRY MOUTH [None]
  - WEIGHT DECREASED [None]
